FAERS Safety Report 13445960 (Version 1)
Quarter: 2017Q2

REPORT INFORMATION
  Report Type: Spontaneous
  Country: US (occurrence: US)
  Receive Date: 20170417
  Receipt Date: 20170417
  Transmission Date: 20170830
  Serious: No
  Sender: FDA-Public Use
  Company Number: US-BION-005999

PATIENT
  Age: 69 Year
  Sex: Female
  Weight: 91 kg

DRUGS (4)
  1. ALEVE [Suspect]
     Active Substance: NAPROXEN SODIUM
     Indication: PAIN
     Dosage: ONCE A DAY/ AS NEEDED
     Route: 048
  2. ASCORBIC ACID/CALCIUM/MINERALS NOS/RETINOL/TOCOPHERYL ACETATE/VITAMIN B NOS/VITAMINS NOS/ZINC [Concomitant]
  3. CELECOXIB. [Concomitant]
     Active Substance: CELECOXIB
  4. METOPROLOL. [Concomitant]
     Active Substance: METOPROLOL

REACTIONS (3)
  - Product coating issue [Unknown]
  - Product leakage [Unknown]
  - Poor quality drug administered [Unknown]

NARRATIVE: CASE EVENT DATE: 20170208
